FAERS Safety Report 6950930-1 (Version None)
Quarter: 2010Q3

REPORT INFORMATION
  Report Type: 
  Country: None (occurrence: None)
  Receive Date: 20100828
  Receipt Date: 20100303
  Transmission Date: 20110219
  Serious: No
  Sender: FDA-Public Use
  Company Number: US-ABBOTT-10P-163-0630435-00

PATIENT
  Sex: Female
  Weight: 74.91 kg

DRUGS (6)
  1. NIASPAN [Suspect]
     Indication: BLOOD CHOLESTEROL INCREASED
     Dates: start: 20100201, end: 20100201
  2. LOVOXYL [Concomitant]
     Indication: HYPOTHYROIDISM
  3. ATENOLOL [Concomitant]
     Indication: HYPERTENSION
  4. HYDROCHLOROTHIAZIDE [Concomitant]
     Indication: HYPERTENSION
  5. AMLODIPINE [Concomitant]
     Indication: HYPERTENSION
  6. DIOVAN [Concomitant]
     Indication: HYPERTENSION

REACTIONS (1)
  - PAIN IN EXTREMITY [None]
